FAERS Safety Report 9808876 (Version 1)
Quarter: 2014Q1

REPORT INFORMATION
  Report Type: Report from Study
  Country: US (occurrence: US)
  Receive Date: 20140110
  Receipt Date: 20140110
  Transmission Date: 20141002
  Serious: No
  Sender: FDA-Public Use
  Company Number: US-ALEXION-A201304377

PATIENT
  Age: 66 Year
  Sex: Male

DRUGS (2)
  1. SOLIRIS [Suspect]
     Indication: PAROXYSMAL NOCTURNAL HAEMOGLOBINURIA
     Dosage: UNK
     Dates: start: 20071112
  2. SOLIRIS [Suspect]
     Dosage: 900 MG, Q2W

REACTIONS (2)
  - Vertigo [Recovered/Resolved]
  - Dizziness [Recovered/Resolved]
